FAERS Safety Report 23533197 (Version 2)
Quarter: 2024Q1

REPORT INFORMATION
  Report Type: Report from Study
  Country: DE (occurrence: DE)
  Receive Date: 20240216
  Receipt Date: 20240225
  Transmission Date: 20240409
  Serious: Yes (Death, Other)
  Sender: FDA-Public Use
  Company Number: DE-ABBVIE-5642429

PATIENT
  Age: 80 Year
  Sex: Male
  Weight: 90 kg

DRUGS (9)
  1. CARBIDOPA\LEVODOPA [Suspect]
     Active Substance: CARBIDOPA\LEVODOPA
     Indication: Parkinson^s disease
     Dosage: MD 3.0 ML, CRD 2.5 ML/H, CRN 0.7 ML/H, ED 2.5 ML
     Route: 050
     Dates: start: 20231222
  2. CARBIDOPA\LEVODOPA [Suspect]
     Active Substance: CARBIDOPA\LEVODOPA
     Dosage: MD 3.0 ML, CRD 2.5 ML/H, CRN 0.7 ML/H, ED 2.5 ML
     Route: 050
     Dates: start: 202312, end: 20231222
  3. PRAMIPEXOLE [Concomitant]
     Active Substance: PRAMIPEXOLE\PRAMIPEXOLE DIHYDROCHLORIDE
     Indication: Product used for unknown indication
     Dates: end: 2023
  4. FRESUBIN [Concomitant]
     Active Substance: AMINO ACIDS\DEXTROSE\ELECTROLYTES NOS\SOYBEAN OIL\VITAMINS
     Indication: Product used for unknown indication
  5. L DOPA [Concomitant]
     Active Substance: LEVODOPA
     Indication: Product used for unknown indication
  6. QUETIAPINE [Concomitant]
     Active Substance: QUETIAPINE
     Indication: Product used for unknown indication
  7. Colchicin ysat [Concomitant]
     Indication: Product used for unknown indication
  8. DALTEPARIN [Concomitant]
     Active Substance: DALTEPARIN
     Indication: Product used for unknown indication
  9. IBUPROFEN [Concomitant]
     Active Substance: IBUPROFEN
     Indication: Product used for unknown indication

REACTIONS (7)
  - Pulmonary sepsis [Fatal]
  - Cardiac failure [Fatal]
  - Decubitus ulcer [Unknown]
  - Dysphagia [Unknown]
  - Pleural effusion [Unknown]
  - Pericardial effusion [Unknown]
  - Colostomy [Unknown]

NARRATIVE: CASE EVENT DATE: 20240127
